FAERS Safety Report 15681953 (Version 6)
Quarter: 2019Q1

REPORT INFORMATION
  Report Type: Report from Study
  Country: US (occurrence: US)
  Receive Date: 20181203
  Receipt Date: 20190320
  Transmission Date: 20190417
  Serious: Yes (Other)
  Sender: FDA-Public Use
  Company Number: US-PFIZER INC-2018438323

PATIENT
  Age: 41 Year
  Sex: Female

DRUGS (2)
  1. IBRANCE [Suspect]
     Active Substance: PALBOCICLIB
     Dosage: 125 MG, CYCLIC (DAILY FOR 21 DAYS ON, 7 DAYS OFF)
     Route: 048
     Dates: start: 20181116, end: 20181130
  2. IBRANCE [Suspect]
     Active Substance: PALBOCICLIB
     Indication: BREAST CANCER FEMALE
     Dosage: 125 MG, CYCLIC (DAILY FOR 21 DAYS ON, 7 DAYS OFF)
     Route: 048
     Dates: start: 20181017, end: 20181101

REACTIONS (17)
  - Dysgeusia [Unknown]
  - Fatigue [Unknown]
  - Upper-airway cough syndrome [Not Recovered/Not Resolved]
  - Onychoclasis [Unknown]
  - Rash [Unknown]
  - Oropharyngeal pain [Unknown]
  - Headache [Unknown]
  - Arthralgia [Unknown]
  - Leukopenia [Unknown]
  - Bone marrow failure [Recovered/Resolved]
  - Sinusitis [Recovered/Resolved]
  - Nasopharyngitis [Unknown]
  - Ear pain [Unknown]
  - Cough [Unknown]
  - Nausea [Unknown]
  - Madarosis [Unknown]
  - Asthenia [Unknown]

NARRATIVE: CASE EVENT DATE: 2018
